FAERS Safety Report 18949635 (Version 1)
Quarter: 2021Q1

REPORT INFORMATION
  Report Type: Spontaneous
  Country: US (occurrence: US)
  Receive Date: 20210227
  Receipt Date: 20210227
  Transmission Date: 20210420
  Serious: No
  Sender: FDA-Public Use
  Company Number: US-ROCHE-2649553

PATIENT

DRUGS (1)
  1. XOLAIR [Suspect]
     Active Substance: OMALIZUMAB
     Indication: MAST CELL ACTIVATION SYNDROME
     Route: 065
     Dates: start: 202003

REACTIONS (5)
  - Off label use [Unknown]
  - Ehlers-Danlos syndrome [Unknown]
  - Back pain [Unknown]
  - Nausea [Unknown]
  - Intentional product use issue [Unknown]
